FAERS Safety Report 9504345 (Version 2)
Quarter: 2013Q3

REPORT INFORMATION
  Report Type: Spontaneous
  Country: DK (occurrence: DK)
  Receive Date: 20130906
  Receipt Date: 20130923
  Transmission Date: 20140515
  Serious: Yes (Hospitalization)
  Sender: FDA-Public Use
  Company Number: DK-ACTAVIS-2013-15730

PATIENT
  Age: 47 Year
  Sex: Male

DRUGS (11)
  1. RAMIPRIL [Suspect]
     Indication: HYPERTENSION
     Dosage: 5 MG, DAILY
     Route: 048
  2. PANTOPRAZOL [Suspect]
     Indication: REGURGITATION
     Dosage: 40 MG, UNKNOWN
     Route: 048
  3. CENTYL MED KALIUMKLORID [Suspect]
     Indication: HYPERTENSION
     Dosage: 2.5+573 MG DAILY
     Route: 048
  4. CENTYL MED KALIUMKLORID [Suspect]
     Dosage: DOSIS: 1X1, STYRKE: 2,5+573 MG
     Route: 048
  5. FURIX [Suspect]
     Indication: HYPERTENSION
     Dosage: 20 MG, DAILY
     Route: 048
  6. FURIX [Suspect]
     Dosage: 20 MG
     Route: 048
  7. FURIX [Suspect]
     Dosage: DOSIS: 1X1, STYRKE: 20 MG
     Route: 048
  8. FURIX [Suspect]
     Dosage: DOSIS: 1X1, STYRKE: 20 MG
     Route: 048
  9. ALLOPURINOL [Concomitant]
     Indication: GOUTY ARTHRITIS
     Dosage: UNK,
     Route: 065
  10. KALEORID [Concomitant]
     Indication: HYPOKALAEMIA
     Dosage: UNK
     Route: 065
  11. KALEORID [Concomitant]
     Indication: HYPOKALAEMIA

REACTIONS (1)
  - Syncope [Recovering/Resolving]
